FAERS Safety Report 8536752-9 (Version None)
Quarter: 2012Q3

REPORT INFORMATION
  Report Type: 
  Country: None (occurrence: None)
  Receive Date: 20120725
  Receipt Date: 20120722
  Transmission Date: 20120928
  Serious: Yes (Other)
  Sender: FDA-Public Use
  Company Number: US-ALLERGAN-1207166US

PATIENT
  Sex: Male

DRUGS (5)
  1. REFRESH PLUS [Suspect]
     Indication: DRY EYE
     Dosage: 2 GTT, PRN
     Route: 047
     Dates: start: 20120517, end: 20120523
  2. REFRESH PLUS [Suspect]
     Dosage: 2 GTT, PRN
     Route: 047
  3. REFRESH PLUS [Suspect]
     Dosage: 2 GTT, PRN
     Route: 047
     Dates: start: 20120419, end: 20120423
  4. REFRESH PLUS [Concomitant]
     Indication: DRY EYE
     Dosage: 2 GTT, PRN
     Route: 047
  5. PROPYLENE GLYCOL [Concomitant]
     Indication: DRY EYE
     Dosage: 2 GTT, PRN
     Route: 047

REACTIONS (3)
  - CONJUNCTIVITIS [None]
  - OCULAR HYPERAEMIA [None]
  - EYE DISCHARGE [None]
